FAERS Safety Report 24792544 (Version 1)
Quarter: 2024Q4

REPORT INFORMATION
  Report Type: Spontaneous
  Country: JP (occurrence: JP)
  Receive Date: 20241231
  Receipt Date: 20241231
  Transmission Date: 20250114
  Serious: Yes (Death)
  Sender: VERICEL
  Company Number: JP-VERICEL-JP-VCEL-24-000480

PATIENT
  Age: 83 Year
  Sex: Male

DRUGS (1)
  1. BROMELAINS [Suspect]
     Active Substance: BROMELAINS
     Indication: Debridement
     Dosage: 1 DOSAGE FORM, QD
     Route: 061
     Dates: start: 20231104, end: 20231104

REACTIONS (3)
  - Death [Fatal]
  - Infection [Unknown]
  - Pyrexia [Unknown]

NARRATIVE: CASE EVENT DATE: 20231101
